FAERS Safety Report 25104541 (Version 1)
Quarter: 2025Q1

REPORT INFORMATION
  Report Type: Spontaneous
  Country: TR (occurrence: TR)
  Receive Date: 20250321
  Receipt Date: 20250321
  Transmission Date: 20250409
  Serious: Yes (Other)
  Sender: STRIDES
  Company Number: TR-STRIDES ARCOLAB LIMITED-2025SP003574

PATIENT
  Age: 42 Year
  Sex: Female

DRUGS (3)
  1. ETOPOSIDE [Suspect]
     Active Substance: ETOPOSIDE
     Indication: Glioblastoma multiforme
     Route: 065
  2. BLEOMYCIN [Suspect]
     Active Substance: BLEOMYCIN SULFATE
     Indication: Glioblastoma multiforme
     Route: 065
  3. CISPLATIN [Suspect]
     Active Substance: CISPLATIN
     Indication: Glioblastoma multiforme
     Route: 065

REACTIONS (4)
  - Disease progression [Unknown]
  - Febrile neutropenia [Recovering/Resolving]
  - Drug ineffective for unapproved indication [Unknown]
  - Mucosal inflammation [Recovering/Resolving]
